FAERS Safety Report 24245445 (Version 2)
Quarter: 2024Q3

REPORT INFORMATION
  Report Type: Spontaneous
  Country: JP (occurrence: None)
  Receive Date: 20240824
  Receipt Date: 20240829
  Transmission Date: 20241017
  Serious: Yes (Life-Threatening, Hospitalization)
  Sender: ASTRAZENECA
  Company Number: 2024A190997

PATIENT
  Age: 62 Year
  Sex: Female
  Weight: 42 kg

DRUGS (10)
  1. TRUQAP [Suspect]
     Active Substance: CAPIVASERTIB
     Indication: Breast cancer
     Dosage: ON A 4-DAYS-ON, 3-DAYS-OFF SCHEDULE
     Route: 048
     Dates: start: 20240726, end: 20240805
  2. TRUQAP [Suspect]
     Active Substance: CAPIVASERTIB
     Indication: Breast cancer
     Route: 048
     Dates: start: 20240808
  3. FASLODEX [Suspect]
     Active Substance: FULVESTRANT
     Indication: Breast cancer
     Dosage: DOSE UNKNOWN
     Route: 030
     Dates: start: 20240726
  4. PREGABALIN [Concomitant]
     Active Substance: PREGABALIN
     Route: 048
     Dates: start: 20221114
  5. TRAMADOL HYDROCHLORIDE [Concomitant]
     Active Substance: TRAMADOL HYDROCHLORIDE
     Route: 048
     Dates: start: 20230125
  6. METHYLCOBALAMIN [Concomitant]
     Active Substance: METHYLCOBALAMIN
     Route: 048
     Dates: start: 20230125
  7. MIYA-BM [Concomitant]
     Active Substance: CLOSTRIDIUM BUTYRICUM SPORES STRAIN M-55
     Route: 048
     Dates: start: 20230125
  8. VONOPRAZAN FUMARATE [Concomitant]
     Active Substance: VONOPRAZAN FUMARATE
     Route: 048
     Dates: start: 20240628
  9. REBAMIPIDE [Concomitant]
     Active Substance: REBAMIPIDE
     Dosage: DOSE UNKNOWN
     Route: 048
     Dates: start: 20240725
  10. MAGNESIUM OXIDE [Concomitant]
     Active Substance: MAGNESIUM OXIDE
     Dosage: AS REQUIRED
     Route: 048

REACTIONS (3)
  - Hyperglycaemia [Recovering/Resolving]
  - Diabetic ketoacidosis [Recovering/Resolving]
  - Hyperglycaemic hyperosmolar nonketotic syndrome [Recovering/Resolving]

NARRATIVE: CASE EVENT DATE: 20240805
